FAERS Safety Report 13888361 (Version 1)
Quarter: 2017Q3

REPORT INFORMATION
  Report Type: Spontaneous
  Country: US (occurrence: US)
  Receive Date: 20170822
  Receipt Date: 20170822
  Transmission Date: 20171127
  Serious: Yes (Other)
  Sender: FDA-Public Use
  Company Number: US-RECKITT BENCKISER HEALTHCARE INT LIMITED-RB-92355-2017

PATIENT
  Age: 2 Year
  Sex: Female

DRUGS (1)
  1. DELSYM [Suspect]
     Active Substance: DEXTROMETHORPHAN
     Indication: PRODUCT USED FOR UNKNOWN INDICATION
     Dosage: 2 ML, UNK
     Route: 048
     Dates: start: 20170803

REACTIONS (3)
  - Accidental exposure to product by child [Unknown]
  - Psychomotor hyperactivity [Unknown]
  - Accidental overdose [Unknown]

NARRATIVE: CASE EVENT DATE: 20170803
